FAERS Safety Report 23106307 (Version 1)
Quarter: 2023Q4

REPORT INFORMATION
  Report Type: Spontaneous
  Country: BR (occurrence: BR)
  Receive Date: 20231025
  Receipt Date: 20231025
  Transmission Date: 20240109
  Serious: Yes (Death, Other)
  Sender: FDA-Public Use
  Company Number: BR-FreseniusKabi-FK202317045

PATIENT
  Sex: Male

DRUGS (6)
  1. PROPOFOL [Suspect]
     Active Substance: PROPOFOL
     Indication: Induction of anaesthesia
     Route: 065
  2. FENTANYL [Suspect]
     Active Substance: FENTANYL\FENTANYL CITRATE
     Indication: Induction of anaesthesia
  3. MIDAZOLAM [Suspect]
     Active Substance: MIDAZOLAM
     Indication: Product used for unknown indication
  4. ATRACURIUM BESYLATE [Suspect]
     Active Substance: ATRACURIUM BESYLATE
     Indication: Induction of anaesthesia
  5. HALOTHANE [Suspect]
     Active Substance: HALOTHANE
     Indication: Maintenance of anaesthesia
  6. NITROUS OXIDE [Suspect]
     Active Substance: NITROUS OXIDE
     Indication: Maintenance of anaesthesia

REACTIONS (1)
  - Hyperthermia malignant [Fatal]
